FAERS Safety Report 9832997 (Version 1)
Quarter: 2014Q1

REPORT INFORMATION
  Report Type: Spontaneous
  Country: DK (occurrence: FR)
  Receive Date: 20140121
  Receipt Date: 20140121
  Transmission Date: 20141002
  Serious: Yes (Hospitalization)
  Sender: FDA-Public Use
  Company Number: FR-FRI-1000052950

PATIENT
  Age: 68 Year
  Sex: Male

DRUGS (2)
  1. ESCITALOPRAM [Suspect]
  2. TERALITHE LP [Interacting]
     Indication: BIPOLAR DISORDER
     Dosage: 1 DF
     Route: 048
     Dates: end: 201312

REACTIONS (2)
  - Tremor [Recovering/Resolving]
  - Drug interaction [Recovering/Resolving]
